FAERS Safety Report 17371885 (Version 5)
Quarter: 2021Q2

REPORT INFORMATION
  Report Type: Spontaneous
  Country: JP (occurrence: JP)
  Receive Date: 20200205
  Receipt Date: 20210427
  Transmission Date: 20210716
  Serious: Yes (Death, Hospitalization, Other)
  Sender: FDA-Public Use
  Company Number: JP-CELGENEUS-JPN-20200105011

PATIENT
  Age: 77 Year
  Sex: Female
  Weight: 45.9 kg

DRUGS (4)
  1. POMALYST [Suspect]
     Active Substance: POMALIDOMIDE
     Indication: PLASMA CELL MYELOMA
     Dosage: 4 MILLIGRAM
     Route: 048
     Dates: start: 20200108, end: 20200112
  2. POMALYST [Suspect]
     Active Substance: POMALIDOMIDE
     Dosage: 1 MILLIGRAM
     Route: 048
     Dates: start: 20200115, end: 20200128
  3. TRAZENTA [Suspect]
     Active Substance: LINAGLIPTIN
     Indication: TYPE 2 DIABETES MELLITUS
     Dosage: 5 MILLIGRAM
     Route: 065
     Dates: start: 20190130, end: 20200218
  4. TAKECAB [Suspect]
     Active Substance: VONOPRAZAN FUMARATE
     Indication: GASTROOESOPHAGEAL REFLUX DISEASE
     Dosage: 10 MILLIGRAM
     Route: 048
     Dates: start: 20190327, end: 20200218

REACTIONS (7)
  - Erythema [Recovering/Resolving]
  - Pruritus [Unknown]
  - Loss of consciousness [Fatal]
  - Taste disorder [Unknown]
  - Decreased appetite [Fatal]
  - White blood cell count decreased [Unknown]
  - Malaise [Fatal]

NARRATIVE: CASE EVENT DATE: 20200111
